FAERS Safety Report 22635395 (Version 1)
Quarter: 2023Q2

REPORT INFORMATION
  Report Type: Spontaneous
  Country: US (occurrence: US)
  Receive Date: 20230623
  Receipt Date: 20230623
  Transmission Date: 20230722
  Serious: Yes (Other)
  Sender: FDA-Public Use
  Company Number: US-PFIZER INC-202300227663

PATIENT
  Age: 36 Year
  Sex: Female

DRUGS (2)
  1. MEDROXYPROGESTERONE ACETATE [Suspect]
     Active Substance: MEDROXYPROGESTERONE ACETATE
     Indication: Contraception
     Dosage: UNK
     Dates: start: 2008
  2. MEDROXYPROGESTERONE ACETATE [Suspect]
     Active Substance: MEDROXYPROGESTERONE ACETATE
     Indication: Hormone therapy
     Dosage: UNK, EVERY 3 MONTHS
     Dates: start: 2019

REACTIONS (17)
  - Gait disturbance [Unknown]
  - Product dose omission issue [Unknown]
  - Heavy menstrual bleeding [Unknown]
  - Menstrual clots [Unknown]
  - Amenorrhoea [Unknown]
  - Bone pain [Unknown]
  - Pain in extremity [Unknown]
  - Bone pain [Unknown]
  - Pain [Unknown]
  - Myalgia [Unknown]
  - Asthenia [Unknown]
  - Arthralgia [Unknown]
  - Somnolence [Unknown]
  - Bone density decreased [Unknown]
  - Vaginal disorder [Unknown]
  - Female sex hormone level abnormal [Unknown]
  - Bone marrow disorder [Unknown]
